FAERS Safety Report 14214167 (Version 1)
Quarter: 2017Q4

REPORT INFORMATION
  Report Type: Spontaneous
  Country: None (occurrence: US)
  Receive Date: 20171122
  Receipt Date: 20171122
  Transmission Date: 20180321
  Serious: No
  Sender: FDA-Public Use
  Company Number: US-MEDAC PHARMA, INC.-2034906

PATIENT
  Age: 60 Year
  Sex: Male
  Weight: 85.46 kg

DRUGS (13)
  1. WARFARIN SODIUM. [Concomitant]
     Active Substance: WARFARIN SODIUM
  2. ENBREL [Concomitant]
     Active Substance: ETANERCEPT
  3. VITAMIN D [Concomitant]
     Active Substance: CHOLECALCIFEROL
  4. FOLBIC [Concomitant]
     Active Substance: CYANOCOBALAMIN\FOLIC ACID\PYRIDOXINE
  5. CLARITIN [Concomitant]
     Active Substance: LORATADINE
  6. TRAMADOL. [Concomitant]
     Active Substance: TRAMADOL
  7. NASONEX [Concomitant]
     Active Substance: MOMETASONE FUROATE
  8. VASCEPA [Concomitant]
     Active Substance: ICOSAPENT ETHYL
  9. FOLIC ACID. [Concomitant]
     Active Substance: FOLIC ACID
  10. L-ARGININE [Concomitant]
     Active Substance: ARGININE
  11. LIVALO [Concomitant]
     Active Substance: PITAVASTATIN CALCIUM
  12. RASUVO [Suspect]
     Active Substance: METHOTREXATE SODIUM
     Indication: ANKYLOSING SPONDYLITIS
  13. TURMERIC [Concomitant]
     Active Substance: HERBALS\TURMERIC

REACTIONS (3)
  - Muscle spasms [Not Recovered/Not Resolved]
  - Alopecia [Not Recovered/Not Resolved]
  - Product use in unapproved indication [None]
